FAERS Safety Report 4490107-5 (Version None)
Quarter: 2004Q4

REPORT INFORMATION
  Report Type: 
  Country: None (occurrence: None)
  Receive Date: 20041028
  Receipt Date: 20041014
  Transmission Date: 20050328
  Serious: Yes (Other)
  Sender: FDA-Public Use
  Company Number: K200401628

PATIENT
  Age: 14 Year
  Sex: Male
  Weight: 63.5 kg

DRUGS (4)
  1. SKELAXIN [Suspect]
     Indication: MUSCLE SPASMS
     Dosage: SEE IMAGE
     Route: 048
     Dates: start: 20040101
  2. SKELAXIN [Suspect]
     Indication: MUSCLE SPASMS
     Dosage: SEE IMAGE
     Route: 048
     Dates: start: 20040201
  3. CELEBREX [Concomitant]
  4. FLEXERIL (CYCLOBENAZAPINE HYDROCHLORIDE) [Concomitant]

REACTIONS (4)
  - DRUG INEFFECTIVE [None]
  - OSTEOPENIA [None]
  - OSTEOPOROSIS [None]
  - WHITE BLOOD CELL COUNT DECREASED [None]
